FAERS Safety Report 5983290-3 (Version None)
Quarter: 2008Q4

REPORT INFORMATION
  Report Type: 
  Country: None (occurrence: None)
  Receive Date: 20081208
  Receipt Date: 20080715
  Transmission Date: 20090506
  Serious: No
  Sender: FDA-Public Use
  Company Number: US-BAYER-200812907BCC

PATIENT
  Sex: Female

DRUGS (2)
  1. ALEVE [Suspect]
     Indication: NASOPHARYNGITIS
     Route: 048
  2. ANTIDEPRESSANTS [Concomitant]

REACTIONS (1)
  - DRUG SCREEN POSITIVE [None]
